FAERS Safety Report 4672478-X (Version None)
Quarter: 2005Q2

REPORT INFORMATION
  Report Type: 
  Country: None (occurrence: None)
  Receive Date: 20050524
  Receipt Date: 20000601
  Transmission Date: 20051028
  Serious: Yes (Hospitalization, Disabling)
  Sender: FDA-Public Use
  Company Number: US-2000-BP-01055

PATIENT
  Sex: Female
  Weight: 91.4 kg

DRUGS (6)
  1. VIRAMUNE [Suspect]
     Indication: PROPHYLAXIS AGAINST HIV INFECTION
     Route: 048
     Dates: start: 20000201, end: 20000221
  2. COMBIVIR [Concomitant]
     Indication: PROPHYLAXIS AGAINST HIV INFECTION
     Route: 048
  3. VERAPAMIL [Concomitant]
     Indication: HYPERTENSION
     Dates: end: 20000304
  4. CLAVITIN [Concomitant]
     Dates: end: 20000304
  5. CIPROFLOXACIN [Concomitant]
     Dates: end: 20000304
  6. CLARITIN-D [Concomitant]

REACTIONS (4)
  - COMA HEPATIC [None]
  - HEPATIC FAILURE [None]
  - HYPERSENSITIVITY [None]
  - REFUSAL OF TREATMENT BY PATIENT [None]
